FAERS Safety Report 6701825-X (Version None)
Quarter: 2010Q2

REPORT INFORMATION
  Report Type: 
  Country: None (occurrence: None)
  Receive Date: 20100427
  Receipt Date: 20100413
  Transmission Date: 20101027
  Serious: Yes (Other)
  Sender: FDA-Public Use
  Company Number: 2010PL000049

PATIENT
  Age: 44 Year
  Sex: Female
  Weight: 85.7298 kg

DRUGS (4)
  1. LOTRONEX [Suspect]
     Indication: IRRITABLE BOWEL SYNDROME
     Dosage: 0.5 MG;BID
     Dates: start: 20100301, end: 20100409
  2. LISINOPRIL [Concomitant]
  3. ZOCOR [Concomitant]
  4. MELOXICAM [Concomitant]

REACTIONS (2)
  - COLITIS ISCHAEMIC [None]
  - WEIGHT DECREASED [None]
